FAERS Safety Report 23978396 (Version 1)
Quarter: 2024Q2

REPORT INFORMATION
  Report Type: Spontaneous
  Country: CN (occurrence: None)
  Receive Date: 20240614
  Receipt Date: 20240614
  Transmission Date: 20240716
  Serious: Yes (Hospitalization)
  Sender: FDA-Public Use
  Company Number: 2024A135020

PATIENT
  Age: 3777 Week
  Sex: Male
  Weight: 65 kg

DRUGS (1)
  1. ROSUVASTATIN CALCIUM [Suspect]
     Active Substance: ROSUVASTATIN CALCIUM
     Indication: Hyperlipidaemia
     Route: 048
     Dates: start: 20240510, end: 20240523

REACTIONS (1)
  - Adenoma benign [Unknown]

NARRATIVE: CASE EVENT DATE: 20240522
